FAERS Safety Report 5424387-6 (Version None)
Quarter: 2007Q3

REPORT INFORMATION
  Report Type: 
  Country: None (occurrence: None)
  Receive Date: 20070822
  Receipt Date: 20070814
  Transmission Date: 20080115
  Serious: Yes (Hospitalization)
  Sender: FDA-Public Use
  Company Number: 2007-GWCA-049

PATIENT
  Age: 82 Year
  Sex: Male
  Weight: 76.6579 kg

DRUGS (8)
  1. ALDARA [Suspect]
     Indication: PRECANCEROUS CELLS PRESENT
     Dosage: 3XW, TOPICAL
     Route: 061
     Dates: start: 20070701
  2. CRESTOR [Concomitant]
  3. RANITIDINE (ZANTAC) [Concomitant]
  4. ACETAMINOPHEN [Concomitant]
  5. ASPIRIN [Concomitant]
  6. DEXTROMETHORPHAN HBR [Concomitant]
  7. DOXYLAMINE SUCCINATE [Concomitant]
  8. NYQUIL [Concomitant]

REACTIONS (5)
  - APPLICATION SITE SCAB [None]
  - FATIGUE [None]
  - GAIT DISTURBANCE [None]
  - PYREXIA [None]
  - SPEECH DISORDER [None]
